FAERS Safety Report 25815525 (Version 1)
Quarter: 2025Q3

REPORT INFORMATION
  Report Type: Spontaneous
  Country: EU (occurrence: EU)
  Receive Date: 20250918
  Receipt Date: 20250918
  Transmission Date: 20251021
  Serious: Yes (Hospitalization, Other)
  Sender: AUROBINDO
  Company Number: None

PATIENT
  Age: 61 Year
  Sex: Male
  Weight: 62 kg

DRUGS (5)
  1. ESOMEPRAZOLE MAGNESIUM [Suspect]
     Active Substance: ESOMEPRAZOLE MAGNESIUM
     Indication: Abdominal pain upper
     Dosage: 40 MILLIGRAM, ONCE A DAY
     Route: 048
     Dates: start: 202101
  2. FUROSEMIDE [Suspect]
     Active Substance: FUROSEMIDE
     Indication: Cardiac failure
     Dosage: 40 MILLIGRAM, ONCE A DAY
     Route: 042
     Dates: start: 20250821, end: 20250822
  3. FUROSEMIDE [Suspect]
     Active Substance: FUROSEMIDE
     Dosage: 40 MILLIGRAM, ONCE A DAY
     Route: 048
     Dates: start: 20250821, end: 20250827
  4. FUROSEMIDE [Suspect]
     Active Substance: FUROSEMIDE
     Dosage: 20 MILLIGRAM, ONCE A DAY
     Route: 048
     Dates: start: 20250828
  5. CLOXACILLIN [Suspect]
     Active Substance: CLOXACILLIN
     Indication: Staphylococcal sepsis
     Dosage: 10 GRAM, ONCE A DAY
     Route: 042
     Dates: start: 20250819, end: 20250826

REACTIONS (1)
  - Hypokalaemia [Recovering/Resolving]

NARRATIVE: CASE EVENT DATE: 20250822
